FAERS Safety Report 10618814 (Version 1)
Quarter: 2014Q4

REPORT INFORMATION
  Report Type: Spontaneous
  Country: US (occurrence: None)
  Receive Date: 20141125
  Receipt Date: 20141125
  Transmission Date: 20150529
  Serious: Yes (Other)
  Sender: FDA-Public Use
  Company Number: 2014JUB00190

PATIENT
  Age: 54 Year
  Sex: Female
  Weight: 58 kg

DRUGS (5)
  1. FISH OIL [Concomitant]
     Active Substance: FISH OIL
  2. MSM [Concomitant]
  3. LAMOTRIGINE. [Suspect]
     Active Substance: LAMOTRIGINE
     Indication: EPILEPSY
     Route: 048
     Dates: start: 201407, end: 20141104
  4. LAMOTRIGINE. [Suspect]
     Active Substance: LAMOTRIGINE
     Indication: EPILEPSY
     Route: 048
     Dates: start: 20141105
  5. KLONOPIN [Concomitant]
     Active Substance: CLONAZEPAM

REACTIONS (6)
  - Irritability [None]
  - Feeling drunk [None]
  - Drug effect decreased [None]
  - Product substitution issue [None]
  - Product quality issue [None]
  - Seizure [None]

NARRATIVE: CASE EVENT DATE: 2014
